FAERS Safety Report 9320527 (Version 1)
Quarter: 2013Q2

REPORT INFORMATION
  Report Type: Report from Study
  Country: JP (occurrence: JP)
  Receive Date: 20130531
  Receipt Date: 20130531
  Transmission Date: 20140414
  Serious: Yes (Hospitalization, Disabling)
  Sender: FDA-Public Use
  Company Number: JP-009507513-0907USA04899

PATIENT
  Age: 55 Year
  Sex: Male

DRUGS (11)
  1. ISENTRESS [Suspect]
     Indication: HIV INFECTION
     Dosage: 800 MG, QD
     Route: 048
     Dates: start: 20080805
  2. KALETRA [Suspect]
     Indication: HIV INFECTION
     Dosage: 4 DF, UNK
     Route: 048
     Dates: start: 20070704, end: 20080108
  3. EPIVIR [Suspect]
     Indication: HIV INFECTION
     Dosage: 150 MG, BID
     Route: 048
     Dates: start: 20030916, end: 20060228
  4. EPIVIR [Suspect]
     Dosage: 150 MG, BID
     Route: 048
     Dates: start: 20081216
  5. ZERIT [Suspect]
     Indication: HIV INFECTION
     Dosage: 80 MG, QD
     Route: 048
     Dates: start: 20030916, end: 20060228
  6. ZERIT [Suspect]
     Dosage: 60 MG, QD
     Route: 048
     Dates: start: 20081216, end: 20090210
  7. TRUVADA [Suspect]
     Indication: HIV INFECTION
     Dosage: 1 DF, QD
     Route: 048
     Dates: start: 20070704, end: 20080501
  8. TRUVADA [Suspect]
     Dosage: 1 DF, QD
     Route: 048
     Dates: start: 20080805, end: 20081215
  9. PREZISTA [Suspect]
     Indication: HIV INFECTION
     Dosage: 1200 MG, QD
     Route: 048
     Dates: start: 20080109, end: 20080501
  10. INTELENCE [Suspect]
     Indication: HIV INFECTION
     Dosage: 200 MG, BID
     Route: 048
     Dates: start: 20090211
  11. RHYTHMY [Concomitant]
     Indication: INSOMNIA
     Dosage: 2 MG, QD
     Route: 048
     Dates: end: 20081216

REACTIONS (2)
  - Diabetes mellitus [Not Recovered/Not Resolved]
  - Hypertriglyceridaemia [Not Recovered/Not Resolved]
